FAERS Safety Report 4456585-2 (Version None)
Quarter: 2004Q3

REPORT INFORMATION
  Report Type: 
  Country: None (occurrence: None)
  Receive Date: 20040921
  Receipt Date: 20040906
  Transmission Date: 20050211
  Serious: Yes (Hospitalization)
  Sender: FDA-Public Use
  Company Number: 2004-BP-00598BP (4)

PATIENT
  Age: 94 Year
  Sex: Male
  Weight: 54.5 kg

DRUGS (13)
  1. FLOMAX [Suspect]
     Indication: BENIGN PROSTATIC HYPERPLASIA
     Dosage: SEE IMAGE
     Route: 048
     Dates: start: 20031223
  2. FLOMAX [Suspect]
     Indication: DYSURIA
     Dosage: SEE IMAGE
     Route: 048
     Dates: start: 20031223
  3. FLOMAX [Suspect]
     Indication: INFECTION
     Dosage: SEE IMAGE
     Route: 048
     Dates: start: 20031223
  4. FLOMAX [Suspect]
     Indication: RESIDUAL URINE VOLUME
     Dosage: SEE IMAGE
     Route: 048
     Dates: start: 20031223
  5. FLOMAX [Suspect]
     Indication: BENIGN PROSTATIC HYPERPLASIA
     Dosage: SEE IMAGE
     Route: 048
     Dates: start: 20040125
  6. FLOMAX [Suspect]
     Indication: DYSURIA
     Dosage: SEE IMAGE
     Route: 048
     Dates: start: 20040125
  7. FLOMAX [Suspect]
     Indication: INFECTION
     Dosage: SEE IMAGE
     Route: 048
     Dates: start: 20040125
  8. FLOMAX [Suspect]
     Indication: RESIDUAL URINE VOLUME
     Dosage: SEE IMAGE
     Route: 048
     Dates: start: 20040125
  9. BUSPAR [Concomitant]
  10. KLONOPIN [Concomitant]
  11. DHEA (PRASTERONE) [Concomitant]
  12. STOOL SOFTENER (DOCUSATE SODIUM) [Concomitant]
  13. CENTRUM SILVER (CENTRUM SILVER) [Concomitant]

REACTIONS (11)
  - BLOOD URINE [None]
  - CYSTITIS [None]
  - DYSURIA [None]
  - INSOMNIA [None]
  - NAUSEA [None]
  - NERVOUSNESS [None]
  - OFF LABEL USE [None]
  - POLLAKIURIA [None]
  - POST PROCEDURAL COMPLICATION [None]
  - STOMACH DISCOMFORT [None]
  - URINARY RETENTION [None]
